FAERS Safety Report 6468479-1 (Version None)
Quarter: 2009Q4

REPORT INFORMATION
  Report Type: 
  Country: None (occurrence: None)
  Receive Date: 20091202
  Receipt Date: 20091202
  Transmission Date: 20100525
  Serious: Yes (Hospitalization)
  Sender: FDA-Public Use
  Company Number: None

PATIENT
  Age: 42 Year

DRUGS (1)
  1. METFORMIN HCL [Suspect]
     Indication: DIABETES MELLITUS
     Dosage: 1000 MG 1 A DAY
     Dates: start: 20060101, end: 20090725

REACTIONS (2)
  - BLOOD GLUCOSE DECREASED [None]
  - RENAL FAILURE [None]
